FAERS Safety Report 6573341-X (Version None)
Quarter: 2010Q1

REPORT INFORMATION
  Report Type: 
  Country: None (occurrence: None)
  Receive Date: 20100208
  Receipt Date: 20100126
  Transmission Date: 20100710
  Serious: Yes (Hospitalization)
  Sender: FDA-Public Use
  Company Number: NL-CELGENEUS-114-CTHAL-09110747

PATIENT
  Sex: Male
  Weight: 80 kg

DRUGS (15)
  1. THALIDOMIDE [Suspect]
     Indication: MULTIPLE MYELOMA
     Route: 048
     Dates: start: 20091013, end: 20091108
  2. THALIDOMIDE [Suspect]
     Route: 048
     Dates: start: 20090526
  3. MELPHALAN HYDROCHLORIDE [Suspect]
     Indication: MULTIPLE MYELOMA
     Route: 048
     Dates: start: 20091013, end: 20091016
  4. MELPHALAN HYDROCHLORIDE [Suspect]
     Route: 048
     Dates: start: 20090526
  5. PREDNISONE [Suspect]
     Indication: MULTIPLE MYELOMA
     Route: 048
     Dates: start: 20091013, end: 20091016
  6. PREDNISONE [Suspect]
     Route: 048
     Dates: start: 20090526
  7. ALKERAN [Concomitant]
     Indication: MULTIPLE MYELOMA
     Route: 048
     Dates: end: 20091109
  8. ACENOCOUMAROL [Concomitant]
     Indication: ATRIAL FIBRILLATION
     Route: 048
     Dates: start: 20090627, end: 20091108
  9. METOPROLOL TARTRATE [Concomitant]
     Indication: HYPERTENSION
     Route: 048
     Dates: start: 20060101, end: 20091109
  10. MICARDIS [Concomitant]
     Indication: HYPERTENSION
     Route: 048
     Dates: start: 20060101, end: 20091109
  11. CRESTOR [Concomitant]
     Indication: HYPERCHOLESTEROLAEMIA
     Route: 048
     Dates: start: 20060101, end: 20091109
  12. ALFUZOSIN HCL [Concomitant]
     Route: 048
     Dates: start: 20070101, end: 20091109
  13. OMEPRAZOLE [Concomitant]
     Route: 048
     Dates: start: 20050101, end: 20091109
  14. MOVICOLON [Concomitant]
     Route: 048
     Dates: start: 20090501, end: 20091109
  15. BONEFOS [Concomitant]
     Indication: HYPERCALCAEMIA
     Route: 048
     Dates: start: 20090501, end: 20091109

REACTIONS (1)
  - VENTRICULAR FIBRILLATION [None]
